FAERS Safety Report 21693594 (Version 2)
Quarter: 2022Q4

REPORT INFORMATION
  Report Type: Spontaneous
  Country: CH (occurrence: CH)
  Receive Date: 20221207
  Receipt Date: 20221220
  Transmission Date: 20230113
  Serious: Yes (Hospitalization)
  Sender: FDA-Public Use
  Company Number: CH-EXELIXIS-CABO-22058594

PATIENT
  Age: 68 Year
  Sex: Male
  Weight: 79.4 kg

DRUGS (9)
  1. CABOMETYX [Suspect]
     Active Substance: CABOZANTINIB S-MALATE
     Indication: Renal cell carcinoma
     Dosage: 40 MG, QD
     Route: 048
     Dates: start: 202204, end: 20220805
  2. CABOMETYX [Suspect]
     Active Substance: CABOZANTINIB S-MALATE
     Indication: Metastases to lung
     Dosage: 40 MG, QD
     Route: 048
     Dates: start: 20220819, end: 20221014
  3. CABOMETYX [Suspect]
     Active Substance: CABOZANTINIB S-MALATE
     Indication: Metastases to adrenals
  4. OPDIVO [Suspect]
     Active Substance: NIVOLUMAB
     Indication: Renal cell carcinoma
     Dosage: 240 MG, Q2WEEKS
     Route: 042
     Dates: start: 20220429, end: 20220805
  5. OPDIVO [Suspect]
     Active Substance: NIVOLUMAB
     Indication: Metastases to lung
     Dosage: 240 MG, Q2WEEKS
     Route: 042
     Dates: start: 20220902, end: 20220921
  6. OPDIVO [Suspect]
     Active Substance: NIVOLUMAB
     Indication: Metastases to adrenals
  7. HYDROCHLOROTHIAZIDE\IRBESARTAN [Suspect]
     Active Substance: HYDROCHLOROTHIAZIDE\IRBESARTAN
     Indication: Hypertension
     Dosage: 300/25 MG QD
     Route: 048
     Dates: end: 20221014
  8. ASPIRIN [Concomitant]
     Active Substance: ASPIRIN
  9. PRAVASTATIN [Concomitant]
     Active Substance: PRAVASTATIN

REACTIONS (3)
  - Metabolic acidosis [Recovered/Resolved]
  - Acute kidney injury [Recovered/Resolved]
  - Diarrhoea [Recovered/Resolved]

NARRATIVE: CASE EVENT DATE: 20220801
